FAERS Safety Report 18021327 (Version 2)
Quarter: 2020Q3

REPORT INFORMATION
  Report Type: Spontaneous
  Country: US (occurrence: US)
  Receive Date: 20200714
  Receipt Date: 20200804
  Transmission Date: 20201103
  Serious: No
  Sender: FDA-Public Use
  Company Number: US-PFIZER INC-2020268356

PATIENT
  Age: 75 Year
  Sex: Female
  Weight: 122.47 kg

DRUGS (1)
  1. IBRANCE [Suspect]
     Active Substance: PALBOCICLIB
     Indication: BREAST CANCER METASTATIC
     Dosage: 125 MG, CYCLIC (125 MG ONCE DAILY FOR 3 WEEKS THEN OFF FOR A WEEK)

REACTIONS (4)
  - Dyspnoea [Unknown]
  - Presyncope [Unknown]
  - Feeling abnormal [Unknown]
  - Asthenia [Unknown]
